FAERS Safety Report 23729710 (Version 2)
Quarter: 2024Q4

REPORT INFORMATION
  Report Type: Report from Study
  Country: US (occurrence: US)
  Receive Date: 20240411
  Receipt Date: 20241128
  Transmission Date: 20250115
  Serious: Yes (Other)
  Sender: ABBVIE
  Company Number: US-ABBVIE-5711167

PATIENT
  Sex: Male

DRUGS (1)
  1. SKYRIZI [Suspect]
     Active Substance: RISANKIZUMAB-RZAA
     Indication: Psoriasis
     Route: 058
     Dates: start: 20230823

REACTIONS (4)
  - Squamous cell carcinoma of skin [Unknown]
  - Echocardiogram abnormal [Unknown]
  - Irritable bowel syndrome [Unknown]
  - Precancerous skin lesion [Not Recovered/Not Resolved]
